FAERS Safety Report 6141640-1 (Version None)
Quarter: 2009Q2

REPORT INFORMATION
  Report Type: 
  Country: None (occurrence: None)
  Receive Date: 20090402
  Receipt Date: 20090323
  Transmission Date: 20091009
  Serious: Yes (Death)
  Sender: FDA-Public Use
  Company Number: B0567299A

PATIENT
  Age: 42 Year
  Sex: Female

DRUGS (1)
  1. ARIXTRA [Suspect]
     Indication: PHLEBITIS
     Route: 058

REACTIONS (3)
  - CEREBRAL HAEMATOMA [None]
  - COMA [None]
  - SUBDURAL HAEMATOMA [None]
